FAERS Safety Report 4560830-2 (Version None)
Quarter: 2005Q1

REPORT INFORMATION
  Report Type: 
  Country: None (occurrence: None)
  Receive Date: 20050121
  Receipt Date: 20050104
  Transmission Date: 20050727
  Serious: Yes (Hospitalization)
  Sender: FDA-Public Use
  Company Number: A01200500051

PATIENT
  Age: 84 Year
  Sex: Male

DRUGS (2)
  1. PLAVIX [Suspect]
     Indication: CEREBROVASCULAR ACCIDENT
     Dosage: 75 MG QD
     Route: 048
     Dates: start: 20030101, end: 20041101
  2. KARDEGIC (ACETYLSALICYLATE LYSINE) [Concomitant]

REACTIONS (2)
  - BARRETT'S OESOPHAGUS [None]
  - OESOPHAGEAL ULCER HAEMORRHAGE [None]
